FAERS Safety Report 6768223-4 (Version None)
Quarter: 2010Q2

REPORT INFORMATION
  Report Type: 
  Country: None (occurrence: None)
  Receive Date: 20100610
  Receipt Date: 20100603
  Transmission Date: 20101027
  Serious: Yes (Other)
  Sender: FDA-Public Use
  Company Number: 100884

PATIENT
  Age: 57 Year
  Sex: Male

DRUGS (1)
  1. METHOTREXATE [Suspect]
     Indication: PSORIASIS
     Dosage: 7.5MG PER WEEK/ ORALLY/ 1 MONTH
     Route: 048

REACTIONS (3)
  - CARDIOMEGALY [None]
  - ELECTROCARDIOGRAM REPOLARISATION ABNORMALITY [None]
  - PLEUROPERICARDITIS [None]
